FAERS Safety Report 8601233-0 (Version None)
Quarter: 2012Q3

REPORT INFORMATION
  Report Type: 
  Country: None (occurrence: None)
  Receive Date: 20120817
  Receipt Date: 20120813
  Transmission Date: 20120928
  Serious: Yes (Hospitalization, Other)
  Sender: FDA-Public Use
  Company Number: PHHY2012BR070718

PATIENT
  Sex: Male

DRUGS (5)
  1. EXELON [Suspect]
     Indication: NEURODEGENERATIVE DISORDER
     Dosage: 9.5 MG (18 MG/10 CM), DAILY
     Route: 062
  2. EXELON [Suspect]
     Indication: MUSCLE RIGIDITY
  3. EXELON [Suspect]
     Indication: TREMOR
  4. EXELON [Suspect]
     Indication: MEMORY IMPAIRMENT
  5. EXELON [Suspect]
     Indication: PARKINSON'S DISEASE
     Dosage: 4.6 MG (9 MG/5 CM), ONE PATCH DAILY
     Route: 062

REACTIONS (3)
  - PNEUMONIA [None]
  - INFLUENZA [None]
  - VISUAL IMPAIRMENT [None]
